FAERS Safety Report 17755173 (Version 2)
Quarter: 2020Q2

REPORT INFORMATION
  Report Type: Spontaneous
  Country: US (occurrence: US)
  Receive Date: 20200507
  Receipt Date: 20200517
  Transmission Date: 20200714
  Serious: Yes (Hospitalization, Congenital Anomaly)
  Sender: FDA-Public Use
  Company Number: US-ABBVIE-20K-163-3388767-00

PATIENT
  Age: 0 Day
  Sex: Male

DRUGS (1)
  1. HUMIRA [Suspect]
     Active Substance: ADALIMUMAB
     Indication: EXPOSURE VIA BODY FLUID
     Route: 050

REACTIONS (4)
  - Blood bilirubin increased [Recovering/Resolving]
  - Paternal exposure during pregnancy [Unknown]
  - Clavicle fracture [Recovering/Resolving]
  - Umbilical cord around neck [Recovering/Resolving]

NARRATIVE: CASE EVENT DATE: 20180106
